FAERS Safety Report 23202022 (Version 1)
Quarter: 2023Q4

REPORT INFORMATION
  Report Type: Spontaneous
  Country: CN (occurrence: CN)
  Receive Date: 20231120
  Receipt Date: 20231120
  Transmission Date: 20240110
  Serious: Yes (Other)
  Sender: FDA-Public Use
  Company Number: None

PATIENT
  Age: 54 Year
  Sex: Male
  Weight: 85 kg

DRUGS (4)
  1. MANNITOL [Suspect]
     Active Substance: MANNITOL
     Indication: Oedema
     Dosage: 100 MILLILITERS (ML), ONCE DAILY (IVGTT) (DOSAGE FORM: INJECTION)
     Route: 041
     Dates: start: 20231108, end: 20231108
  2. MANNITOL [Suspect]
     Active Substance: MANNITOL
     Indication: Dehydration
  3. KETOROLAC TROMETHAMINE [Suspect]
     Active Substance: KETOROLAC TROMETHAMINE
     Indication: Analgesic therapy
     Dosage: 30 MILLIGRAMS (MG), TWICE DAILY
     Route: 041
     Dates: start: 20231108, end: 20231108
  4. SODIUM CHLORIDE [Suspect]
     Active Substance: SODIUM CHLORIDE
     Indication: Medication dilution
     Dosage: 100 MILLILITERS (ML), TWICE DAILY
     Route: 041
     Dates: start: 20231108, end: 20231108

REACTIONS (3)
  - Rash maculo-papular [Recovering/Resolving]
  - Pruritus [Recovering/Resolving]
  - Rash erythematous [Recovering/Resolving]

NARRATIVE: CASE EVENT DATE: 20231108
